APPROVED DRUG PRODUCT: NAPROXEN SODIUM AND PSEUDOEPHEDRINE HYDROCHLORIDE
Active Ingredient: NAPROXEN SODIUM; PSEUDOEPHEDRINE HYDROCHLORIDE
Strength: 220MG;120MG
Dosage Form/Route: TABLET, EXTENDED RELEASE;ORAL
Application: A076518 | Product #001
Applicant: L PERRIGO CO
Approved: Mar 17, 2004 | RLD: No | RS: Yes | Type: OTC